FAERS Safety Report 5369068-2 (Version None)
Quarter: 2007Q2

REPORT INFORMATION
  Report Type: 
  Country: None (occurrence: None)
  Receive Date: 20070625
  Receipt Date: 20070110
  Transmission Date: 20071010
  Serious: No
  Sender: FDA-Public Use
  Company Number: US-ASTRAZENECA-2007UW00568

PATIENT
  Age: 73 Year
  Sex: Female
  Weight: 62.6 kg

DRUGS (3)
  1. CRESTOR [Suspect]
     Route: 048
     Dates: start: 20061001
  2. PREMARIN [Concomitant]
  3. VITAMIN E [Concomitant]

REACTIONS (2)
  - ARTHRALGIA [None]
  - WEIGHT INCREASED [None]
